FAERS Safety Report 6517664-9 (Version None)
Quarter: 2009Q4

REPORT INFORMATION
  Report Type: 
  Country: None (occurrence: None)
  Receive Date: 20091224
  Receipt Date: 20091221
  Transmission Date: 20100525
  Serious: Yes (Other)
  Sender: FDA-Public Use
  Company Number: IL-NAPPMUNDI-GBR-2009-0005988

PATIENT
  Sex: Male

DRUGS (2)
  1. TARGINACT 10MG/5MG [Suspect]
     Indication: DRUG USE FOR UNKNOWN INDICATION
     Dosage: 2 X 10/5 MG DAILY
     Route: 065
  2. OXYCONTIN [Suspect]
     Indication: DRUG USE FOR UNKNOWN INDICATION
     Route: 065

REACTIONS (2)
  - CONSTIPATION [None]
  - HEPATIC FUNCTION ABNORMAL [None]
